FAERS Safety Report 21837624 (Version 1)
Quarter: 2023Q1

REPORT INFORMATION
  Report Type: Spontaneous
  Country: US (occurrence: None)
  Receive Date: 20230106
  Receipt Date: 20230106
  Transmission Date: 20230418
  Serious: Yes (Hospitalization)
  Sender: FDA-Public Use
  Company Number: None

PATIENT
  Age: 46 Year
  Sex: Male

DRUGS (1)
  1. ADVATE [Suspect]
     Active Substance: ANTIHEMOPHILIC FACTOR, HUMAN RECOMBINANT
     Indication: Factor VIII deficiency
     Dosage: OTHER STRENGTH : 4000;?OTHER QUANTITY : 4000 UNITS;?FREQUENCY : EVERY 12 HOURS;?
     Route: 042
     Dates: start: 202212

REACTIONS (2)
  - Haemorrhoids [None]
  - Haemorrhage [None]

NARRATIVE: CASE EVENT DATE: 20221221
